FAERS Safety Report 22119943 (Version 1)
Quarter: 2023Q1

REPORT INFORMATION
  Report Type: Spontaneous
  Country: FR (occurrence: FR)
  Receive Date: 20230321
  Receipt Date: 20230321
  Transmission Date: 20230418
  Serious: Yes (Hospitalization)
  Sender: FDA-Public Use
  Company Number: None

PATIENT
  Age: 74 Year
  Sex: Male
  Weight: 109 kg

DRUGS (3)
  1. KEYTRUDA [Suspect]
     Active Substance: PEMBROLIZUMAB
     Indication: Tonsil cancer
     Dosage: 200 MILLIGRAM, Q3W
     Route: 042
     Dates: start: 20221026, end: 20221116
  2. FLUOROURACIL [Concomitant]
     Active Substance: FLUOROURACIL
     Indication: Tonsil cancer
     Dosage: UNK
     Route: 042
     Dates: start: 20221026, end: 20221116
  3. CARBOPLATIN [Concomitant]
     Active Substance: CARBOPLATIN
     Indication: Tonsil cancer
     Dosage: UNK
     Route: 042
     Dates: start: 20221026, end: 20221116

REACTIONS (2)
  - Acute coronary syndrome [Recovering/Resolving]
  - Myositis [Recovering/Resolving]

NARRATIVE: CASE EVENT DATE: 20221201
